FAERS Safety Report 7265353-8 (Version None)
Quarter: 2011Q1

REPORT INFORMATION
  Report Type: 
  Country: None (occurrence: None)
  Receive Date: 20110131
  Receipt Date: 20110119
  Transmission Date: 20110831
  Serious: Yes (Other)
  Sender: FDA-Public Use
  Company Number: JP-SANOFI-AVENTIS-2011SA005390

PATIENT
  Sex: Female

DRUGS (10)
  1. CALCIUM LEVOFOLINATE [Suspect]
     Indication: COLON CANCER
     Route: 042
  2. 5-FU [Suspect]
     Route: 041
  3. CALCIUM LEVOFOLINATE [Suspect]
     Route: 042
  4. AVASTIN [Suspect]
     Route: 042
  5. 5-FU [Suspect]
     Route: 040
  6. AVASTIN [Suspect]
     Indication: COLON CANCER
     Route: 042
  7. 5-FU [Suspect]
     Route: 041
  8. ELPLAT [Suspect]
     Indication: COLON CANCER
     Route: 041
  9. ELPLAT [Suspect]
     Route: 041
  10. 5-FU [Suspect]
     Indication: COLON CANCER
     Route: 040

REACTIONS (2)
  - ILEUS [None]
  - SCAR [None]
